FAERS Safety Report 6859703-1 (Version None)
Quarter: 2010Q3

REPORT INFORMATION
  Report Type: 
  Country: None (occurrence: None)
  Receive Date: 20100720
  Receipt Date: 20100712
  Transmission Date: 20110219
  Serious: Yes (Hospitalization, Other)
  Sender: FDA-Public Use
  Company Number: US-BIOGENIDEC-2010BI023865

PATIENT
  Age: 45 Year
  Sex: Female
  Weight: 80 kg

DRUGS (7)
  1. TYSABRI [Suspect]
     Indication: MULTIPLE SCLEROSIS
     Route: 042
     Dates: start: 20080626
  2. OXCARBAZEPINE [Concomitant]
     Route: 048
  3. SEROQUEL [Concomitant]
     Route: 048
  4. GABAPENTIN [Concomitant]
     Route: 048
  5. NUCYNTA [Concomitant]
     Route: 048
     Dates: start: 20090101
  6. MORPHINE [Concomitant]
     Dates: start: 20080101
  7. KLONOPIN [Concomitant]

REACTIONS (2)
  - INTERNAL HERNIA [None]
  - VOLVULUS [None]
